FAERS Safety Report 5938062-2 (Version None)
Quarter: 2008Q4

REPORT INFORMATION
  Report Type: 
  Country: None (occurrence: None)
  Receive Date: 20081031
  Receipt Date: 20081024
  Transmission Date: 20090506
  Serious: Yes (Hospitalization, Other)
  Sender: FDA-Public Use
  Company Number: PHHY2008FR26178

PATIENT
  Sex: Female

DRUGS (3)
  1. LIORESAL [Suspect]
     Dosage: 10 MG, TID
     Route: 048
     Dates: end: 20080929
  2. LIORESAL [Suspect]
     Dosage: 15 MG, TID
     Route: 048
     Dates: start: 20080930, end: 20081001
  3. PHENOBARBITAL TAB [Concomitant]
     Indication: EPILEPSY
     Dosage: 100 MG, QD
     Route: 048
     Dates: start: 19870101

REACTIONS (3)
  - EPILEPSY [None]
  - LOSS OF CONSCIOUSNESS [None]
  - MALAISE [None]
